FAERS Safety Report 14454001 (Version 1)
Quarter: 2018Q1

REPORT INFORMATION
  Report Type: Spontaneous
  Country: US (occurrence: US)
  Receive Date: 20180129
  Receipt Date: 20180129
  Transmission Date: 20180509
  Serious: No
  Sender: FDA-Public Use
  Company Number: US-ALLERGAN-1704003US

PATIENT
  Age: 71 Year
  Sex: Female

DRUGS (9)
  1. EFUDEX [Concomitant]
     Active Substance: FLUOROURACIL
     Indication: PRODUCT USED FOR UNKNOWN INDICATION
  2. TAZORAC [Suspect]
     Active Substance: TAZAROTENE
     Indication: SKIN EXFOLIATION
  3. CRESTOR [Concomitant]
     Active Substance: ROSUVASTATIN CALCIUM
     Indication: HYPERCHOLESTEROLAEMIA
  4. TAZORAC [Suspect]
     Active Substance: TAZAROTENE
     Indication: ACNE
  5. TAZORAC [Suspect]
     Active Substance: TAZAROTENE
     Indication: HYPERKERATOSIS
  6. BABY ASPIRIN [Concomitant]
     Active Substance: ASPIRIN
     Indication: PRODUCT USED FOR UNKNOWN INDICATION
  7. TAZORAC [Suspect]
     Active Substance: TAZAROTENE
     Indication: RASH
     Dosage: UNK, UNKNOWN
     Route: 061
     Dates: start: 1997
  8. TAZORAC [Suspect]
     Active Substance: TAZAROTENE
     Indication: SKIN WRINKLING
  9. SYNTHROID [Concomitant]
     Active Substance: LEVOTHYROXINE SODIUM
     Indication: HYPOTHYROIDISM

REACTIONS (6)
  - Skin exfoliation [Not Recovered/Not Resolved]
  - Off label use [Unknown]
  - Inappropriate schedule of drug administration [Unknown]
  - Skin irritation [Not Recovered/Not Resolved]
  - Rash [Not Recovered/Not Resolved]
  - Erythema [Not Recovered/Not Resolved]
